FAERS Safety Report 9420663 (Version 1)
Quarter: 2013Q3

REPORT INFORMATION
  Report Type: Report from Study
  Country: AU (occurrence: AU)
  Receive Date: 20130725
  Receipt Date: 20130725
  Transmission Date: 20140515
  Serious: Yes (Other)
  Sender: FDA-Public Use
  Company Number: PHHY2013AU078995

PATIENT
  Sex: Male

DRUGS (12)
  1. ACLASTA [Suspect]
     Dosage: 5 MG, UNK
     Route: 042
     Dates: start: 20110624
  2. ACLASTA [Suspect]
     Dosage: 5 MG, UNK
     Route: 042
     Dates: start: 20120628
  3. ATACAND [Concomitant]
     Dosage: UNK UKN, UNK
  4. CARDIPRIN [Concomitant]
     Dosage: UNK UKN, UNK
  5. COSOPT [Concomitant]
     Dosage: UNK UKN, UNK
  6. FUNGILIN [Concomitant]
     Dosage: UNK UKN, UNK
  7. PANAFCORT [Concomitant]
     Dosage: UNK UKN, UNK
  8. PYORALIN EN [Concomitant]
  9. TEMAZE [Concomitant]
     Dosage: UNK UKN, UNK
  10. VENTOLIN [Concomitant]
     Dosage: UNK UKN, UNK
  11. XALATAN [Concomitant]
     Dosage: UNK UKN, UNK
  12. ZANTAC [Concomitant]
     Dosage: UNK UKN, UNK

REACTIONS (4)
  - Circulatory collapse [Unknown]
  - Hyponatraemia [Unknown]
  - Balance disorder [Unknown]
  - Cholelithiasis [Unknown]
